FAERS Safety Report 5487085-9 (Version None)
Quarter: 2007Q4

REPORT INFORMATION
  Report Type: 
  Country: None (occurrence: None)
  Receive Date: 20071016
  Receipt Date: 20071002
  Transmission Date: 20080405
  Serious: Yes (Other)
  Sender: FDA-Public Use
  Company Number: CA-SHR-CA-2007-037086

PATIENT
  Sex: Male

DRUGS (1)
  1. BETASERON [Suspect]
     Route: 058
     Dates: start: 20050101

REACTIONS (2)
  - HEPATIC STEATOSIS [None]
  - HEPATOSPLENOMEGALY [None]
